FAERS Safety Report 7777961-6 (Version None)
Quarter: 2011Q3

REPORT INFORMATION
  Report Type: 
  Country: None (occurrence: None)
  Receive Date: 20110926
  Receipt Date: 20080303
  Transmission Date: 20111222
  Serious: No
  Sender: FDA-Public Use
  Company Number: 2008BI006401

PATIENT
  Age: 41 Year
  Sex: Female

DRUGS (2)
  1. PROVIGIL [Concomitant]
  2. TYSABRI [Suspect]
     Indication: MULTIPLE SCLEROSIS
     Route: 042
     Dates: start: 20071114

REACTIONS (3)
  - FATIGUE [None]
  - CONFUSIONAL STATE [None]
  - HEADACHE [None]
